FAERS Safety Report 18797831 (Version 2)
Quarter: 2021Q1

REPORT INFORMATION
  Report Type: Spontaneous
  Country: GB (occurrence: GB)
  Receive Date: 20210128
  Receipt Date: 20210210
  Transmission Date: 20210419
  Serious: Yes (Other)
  Sender: FDA-Public Use
  Company Number: GB-MICRO LABS LIMITED-ML2021-00186

PATIENT
  Age: 80 Year
  Sex: Male
  Weight: 96 kg

DRUGS (3)
  1. RAMIPRIL. [Concomitant]
     Active Substance: RAMIPRIL
     Indication: ILL-DEFINED DISORDER
  2. CLINDAMYCIN. [Suspect]
     Active Substance: CLINDAMYCIN
     Indication: DIABETIC FOOT
     Dosage: 450MG QDS
     Route: 048
     Dates: start: 20201223, end: 20201231
  3. INSULIN [Concomitant]
     Active Substance: INSULIN NOS
     Indication: ILL-DEFINED DISORDER

REACTIONS (1)
  - Diarrhoea [Recovered/Resolved]

NARRATIVE: CASE EVENT DATE: 20201226
